FAERS Safety Report 8108397 (Version 4)
Quarter: 2012Q4

REPORT INFORMATION
  Report Type: Report from Study
  Country: GB (occurrence: KR)
  Receive Date: 20110826
  Receipt Date: 20121017
  Transmission Date: 20130627
  Serious: Yes (Other)
  Sender: FDA-Public Use
  Company Number: KR-BRISTOL-MYERS SQUIBB COMPANY-15975287

PATIENT
  Age: 49 Year
  Sex: Female

DRUGS (4)
  1. BARACLUDE [Suspect]
     Route: 048
  2. ADEFOVIR [Suspect]
     Indication: HEPATITIS B
     Dates: start: 20090817
  3. SYNTHROID [Concomitant]
     Dates: start: 20051013
  4. LEVOSULPIRIDE [Concomitant]
     Dates: start: 20070702

REACTIONS (1)
  - Myalgia [Recovered/Resolved]
